FAERS Safety Report 18573064 (Version 1)
Quarter: 2020Q4

REPORT INFORMATION
  Report Type: Spontaneous
  Country: US (occurrence: US)
  Receive Date: 20201203
  Receipt Date: 20201203
  Transmission Date: 20210114
  Serious: Yes (Other)
  Sender: FDA-Public Use
  Company Number: US-AUROBINDO-AUR-APL-2020-047914

PATIENT
  Sex: Female

DRUGS (1)
  1. ACYCLOVIR SODIUM INJECTION 1000 MG/20 ML [Suspect]
     Active Substance: ACYCLOVIR SODIUM
     Indication: PRODUCT USED FOR UNKNOWN INDICATION
     Dosage: UNK
     Route: 065

REACTIONS (2)
  - Renal injury [Unknown]
  - Blood creatine decreased [Unknown]
